FAERS Safety Report 17853224 (Version 1)
Quarter: 2020Q2

REPORT INFORMATION
  Report Type: Spontaneous
  Country: US (occurrence: US)
  Receive Date: 20200602
  Receipt Date: 20200602
  Transmission Date: 20200714
  Serious: No
  Sender: FDA-Public Use
  Company Number: US-FOUNDATIONCONSUMERHC-2020-US-000625

PATIENT
  Sex: Female

DRUGS (1)
  1. PLAN B ONE-STEP [Suspect]
     Active Substance: LEVONORGESTREL
     Indication: PRODUCT USED FOR UNKNOWN INDICATION
     Dosage: 2 DOSES ON UNSPECIFIED DATES
     Route: 065

REACTIONS (4)
  - Vulvovaginal burning sensation [Unknown]
  - Pollakiuria [Unknown]
  - Dysmenorrhoea [Unknown]
  - Urogenital haemorrhage [Unknown]
